FAERS Safety Report 26117072 (Version 1)
Quarter: 2025Q4

REPORT INFORMATION
  Report Type: Spontaneous
  Country: US (occurrence: None)
  Receive Date: 20251202
  Receipt Date: 20251202
  Transmission Date: 20260118
  Serious: No
  Sender: FDA-CTU
  Company Number: None

PATIENT
  Age: 52 Year
  Sex: Female
  Weight: 148.5 kg

DRUGS (24)
  1. ARESTIN [Suspect]
     Active Substance: MINOCYCLINE HYDROCHLORIDE
     Indication: Gingival disorder
     Dates: start: 20250501
  2. ONDANSETRON [Concomitant]
     Active Substance: ONDANSETRON
  3. ELETRIPTAN [Concomitant]
     Active Substance: ELETRIPTAN
  4. AZELAIC ACID [Concomitant]
     Active Substance: AZELAIC ACID
  5. MOMETASONE FUROATE [Concomitant]
     Active Substance: MOMETASONE FUROATE
  6. MUPIROCIN [Concomitant]
     Active Substance: MUPIROCIN
  7. Clindamycin phosphate lotion [Concomitant]
  8. DESONIDE [Concomitant]
     Active Substance: DESONIDE
  9. FLUTICASONE PROPIONATE [Concomitant]
     Active Substance: FLUTICASONE PROPIONATE
  10. Hydrocortisone acetic acid [Concomitant]
  11. Ventolin/albuterol inhaler [Concomitant]
  12. ALBUTEROL SULFATE [Concomitant]
     Active Substance: ALBUTEROL SULFATE
  13. EPIPEN [Concomitant]
     Active Substance: EPINEPHRINE
  14. SYSTANE EYEDROPS [Concomitant]
     Active Substance: POLYETHYLENE GLYCOL 400\PROPYLENE GLYCOL
  15. Equate olopatadine hydrochloride (allergy eye drops) [Concomitant]
  16. Equate liquid loratadine [Concomitant]
  17. JWH-018 [Concomitant]
     Active Substance: JWH-018
  18. VITAMIN D3 [Concomitant]
     Active Substance: CHOLECALCIFEROL
  19. VITAMIN C [Concomitant]
     Active Substance: ASCORBIC ACID
  20. ZINC [Concomitant]
     Active Substance: ZINC
  21. B2 [Concomitant]
  22. B12 [Concomitant]
  23. POTASSIUM GLUCONATE [Concomitant]
     Active Substance: POTASSIUM GLUCONATE
  24. Triple magnesium mushroom coffee [Concomitant]

REACTIONS (3)
  - Oral pain [None]
  - Gingival pain [None]
  - Immune system disorder [None]

NARRATIVE: CASE EVENT DATE: 20250501
